FAERS Safety Report 6149238-6 (Version None)
Quarter: 2009Q2

REPORT INFORMATION
  Report Type: 
  Country: None (occurrence: None)
  Receive Date: 20090409
  Receipt Date: 20090407
  Transmission Date: 20091009
  Serious: Yes (Life-Threatening, Hospitalization)
  Sender: FDA-Public Use
  Company Number: PHHY2009FR03737

PATIENT
  Sex: Female

DRUGS (3)
  1. EXELON [Suspect]
     Indication: DEMENTIA
     Dosage: 3 MG DAILY
     Route: 048
     Dates: start: 20080428, end: 20081210
  2. EXELON [Suspect]
     Dosage: 4 MG
     Route: 048
     Dates: start: 20081211, end: 20081215
  3. EXELON [Suspect]
     Dosage: 3 MG
     Route: 048
     Dates: start: 20081215, end: 20081229

REACTIONS (5)
  - BLOOD PRESSURE INCREASED [None]
  - BRADYCARDIA [None]
  - DYSPNOEA AT REST [None]
  - LEFT VENTRICULAR HYPERTROPHY [None]
  - PRESYNCOPE [None]
